FAERS Safety Report 7235788-8 (Version None)
Quarter: 2011Q1

REPORT INFORMATION
  Report Type: 
  Country: None (occurrence: None)
  Receive Date: 20110120
  Receipt Date: 20110111
  Transmission Date: 20110831
  Serious: Yes (Other)
  Sender: FDA-Public Use
  Company Number: US-SANOFI-AVENTIS-2011SA002368

PATIENT
  Sex: Male

DRUGS (5)
  1. TENORMIN [Concomitant]
  2. LORTAB [Concomitant]
  3. ZOCOR [Concomitant]
  4. PLAVIX [Suspect]
     Indication: STENT PLACEMENT
     Route: 048
     Dates: start: 20070818
  5. ASPIRIN [Concomitant]

REACTIONS (2)
  - ROTATOR CUFF SYNDROME [None]
  - FALL [None]
